FAERS Safety Report 14094175 (Version 1)
Quarter: 2017Q4

REPORT INFORMATION
  Report Type: Spontaneous
  Country: US (occurrence: US)
  Receive Date: 20171016
  Receipt Date: 20171016
  Transmission Date: 20180321
  Serious: No
  Sender: FDA-Public Use
  Company Number: US-AMGEN-USASP2017027529

PATIENT
  Age: 84 Year
  Sex: Female

DRUGS (1)
  1. PROLIA [Suspect]
     Active Substance: DENOSUMAB
     Indication: PRODUCT USED FOR UNKNOWN INDICATION
     Dosage: UNK
     Route: 065
     Dates: start: 201611

REACTIONS (5)
  - Muscular weakness [Unknown]
  - Musculoskeletal discomfort [Unknown]
  - Chondrocalcinosis pyrophosphate [Unknown]
  - Bone pain [Unknown]
  - Limb discomfort [Unknown]
